FAERS Safety Report 16976596 (Version 1)
Quarter: 2019Q4

REPORT INFORMATION
  Report Type: Spontaneous
  Country: FR (occurrence: FR)
  Receive Date: 20191030
  Receipt Date: 20191030
  Transmission Date: 20200122
  Serious: Yes (Other)
  Sender: FDA-Public Use
  Company Number: FR-009507513-1910FRA015896

PATIENT
  Age: 27 Year
  Sex: Female
  Weight: 80 kg

DRUGS (1)
  1. NEXPLANON [Suspect]
     Active Substance: ETONOGESTREL
     Indication: HORMONAL CONTRACEPTION
     Dosage: 1 DOSAGE FORM, IMPLANT FOR SUBCUTANEOUS USE
     Route: 058
     Dates: start: 201706, end: 20190704

REACTIONS (4)
  - Alopecia [Not Recovered/Not Resolved]
  - Headache [Not Recovered/Not Resolved]
  - Galactorrhoea [Not Recovered/Not Resolved]
  - Autoimmune hypothyroidism [Recovering/Resolving]

NARRATIVE: CASE EVENT DATE: 201807
